FAERS Safety Report 5385660-3 (Version None)
Quarter: 2007Q3

REPORT INFORMATION
  Report Type: 
  Country: None (occurrence: None)
  Receive Date: 20070712
  Receipt Date: 20070705
  Transmission Date: 20080115
  Serious: Yes (Other)
  Sender: FDA-Public Use
  Company Number: HQWYE918906JUL07

PATIENT
  Sex: Male

DRUGS (2)
  1. EFFEXOR [Suspect]
     Dosage: UNKNOWN
     Route: 065
     Dates: start: 19970101, end: 20020101
  2. EFFEXOR [Suspect]
     Dosage: ^TRYING TO GET OFF^
     Route: 065
     Dates: start: 20020101

REACTIONS (4)
  - DRUG WITHDRAWAL SYNDROME [None]
  - EMOTIONAL DISTRESS [None]
  - PHYSICAL ASSAULT [None]
  - SUICIDE ATTEMPT [None]
